FAERS Safety Report 21063090 (Version 4)
Quarter: 2024Q1

REPORT INFORMATION
  Report Type: Other
  Country: US (occurrence: None)
  Receive Date: 20220711
  Receipt Date: 20240222
  Transmission Date: 20240409
  Serious: No
  Sender: FDA-Public Use
  Company Number: US-ROCHE-2483052

PATIENT
  Age: 71 Year
  Sex: Female
  Weight: 65.83 kg

DRUGS (4)
  1. OCREVUS [Suspect]
     Active Substance: OCRELIZUMAB
     Indication: Relapsing-remitting multiple sclerosis
     Dosage: NEXT DATES OF ADMINISTRATION: 22/MAY/2019, 12/NOV/2019, 08/NOV/2021, 18/NOV/2021, 18/MAY/2022
     Route: 042
     Dates: start: 20190508
  2. VENLAFAXINE [Concomitant]
     Active Substance: VENLAFAXINE HYDROCHLORIDE
  3. LORAZEPAM [Concomitant]
     Active Substance: LORAZEPAM
  4. LATANOPROST [Concomitant]
     Active Substance: LATANOPROST

REACTIONS (5)
  - Nasopharyngitis [Recovered/Resolved]
  - Vomiting [Recovered/Resolved]
  - COVID-19 [Recovered/Resolved]
  - Blood triglycerides abnormal [Not Recovered/Not Resolved]
  - Osteoporosis [Not Recovered/Not Resolved]

NARRATIVE: CASE EVENT DATE: 20191115
